FAERS Safety Report 10033823 (Version 1)
Quarter: 2014Q1

REPORT INFORMATION
  Report Type: Spontaneous
  Country: US (occurrence: US)
  Receive Date: 20140325
  Receipt Date: 20140325
  Transmission Date: 20141002
  Serious: No
  Sender: FDA-Public Use
  Company Number: US-BIOGENIDEC-2014BI025631

PATIENT
  Age: 57 Year
  Sex: Female

DRUGS (1)
  1. TECFIDERA [Suspect]
     Indication: MULTIPLE SCLEROSIS
     Dates: start: 20140308

REACTIONS (5)
  - Paraesthesia [Recovered/Resolved]
  - Pollakiuria [Recovered/Resolved]
  - Weight decreased [Recovered/Resolved]
  - Nausea [Not Recovered/Not Resolved]
  - Flushing [Recovered/Resolved]
